FAERS Safety Report 6545920-7 (Version None)
Quarter: 2010Q1

REPORT INFORMATION
  Report Type: 
  Country: None (occurrence: None)
  Receive Date: 20100121
  Receipt Date: 20100121
  Transmission Date: 20100710
  Serious: Yes (Hospitalization)
  Sender: FDA-Public Use
  Company Number: None

PATIENT
  Sex: Male
  Weight: 13.5 kg

DRUGS (3)
  1. CARBOPLATIN [Suspect]
     Dosage: 425 MG
  2. ETOPOSIDE [Suspect]
     Dosage: 338 MG
  3. MELPHALAN HYDROCHLORIDE [Suspect]
     Dosage: 70 MG

REACTIONS (10)
  - ACTIVATED PARTIAL THROMBOPLASTIN TIME PROLONGED [None]
  - ASCITES [None]
  - ASPARTATE AMINOTRANSFERASE INCREASED [None]
  - BLOOD BILIRUBIN INCREASED [None]
  - BLOOD CREATININE INCREASED [None]
  - HEPATOMEGALY [None]
  - RENAL DISORDER [None]
  - RETROGRADE PORTAL VEIN FLOW [None]
  - VENOOCCLUSIVE DISEASE [None]
  - WEIGHT INCREASED [None]
